FAERS Safety Report 5800165-0 (Version None)
Quarter: 2008Q3

REPORT INFORMATION
  Report Type: 
  Country: None (occurrence: None)
  Receive Date: 20080703
  Receipt Date: 20080627
  Transmission Date: 20090109
  Serious: Yes (Hospitalization)
  Sender: FDA-Public Use
  Company Number: FR-AVENTIS-200812455FR

PATIENT
  Age: 30 Year
  Sex: Male

DRUGS (5)
  1. KETEK [Suspect]
     Route: 048
     Dates: start: 20080407, end: 20080410
  2. KETEK [Suspect]
     Indication: COUGH
     Route: 048
     Dates: start: 20080407, end: 20080410
  3. ADVIL [Concomitant]
     Route: 048
     Dates: start: 20080407, end: 20080410
  4. RHINOFLUIMUCIL                     /00851901/ [Concomitant]
     Indication: COUGH
     Route: 048
     Dates: start: 20080407
  5. HELICIDINE [Concomitant]
     Indication: COUGH
     Route: 048
     Dates: start: 20080407

REACTIONS (3)
  - CYTOLYTIC HEPATITIS [None]
  - HEPATOCELLULAR INJURY [None]
  - RASH ERYTHEMATOUS [None]
